FAERS Safety Report 8770058 (Version 3)
Quarter: 2012Q4

REPORT INFORMATION
  Report Type: Report from Study
  Country: DE (occurrence: DE)
  Receive Date: 20120905
  Receipt Date: 20120920
  Transmission Date: 20130627
  Serious: Yes (Hospitalization)
  Sender: FDA-Public Use
  Company Number: DE-AMGEN-DEUCT2012055425

PATIENT
  Sex: Female
  Weight: 69 kg

DRUGS (9)
  1. ETANERCEPT [Suspect]
     Indication: RHEUMATOID ARTHRITIS
     Dosage: 25 mg, 2 times/wk
     Dates: start: 20110621, end: 20120227
  2. ETANERCEPT [Suspect]
     Dosage: 25 mg, qwk
     Dates: start: 20120228, end: 20120509
  3. PREDNISOLONE [Concomitant]
     Indication: RHEUMATOID ARTHRITIS
     Dosage: 15 mg, 1x/day
     Dates: start: 200003
  4. PREDNISOLONE [Concomitant]
     Dosage: 12.5 mg, UNK
     Dates: start: 20110720
  5. PREDNISOLONE [Concomitant]
     Dosage: 10.5 mg, UNK
     Dates: start: 20120724
  6. PREDNISOLONE [Concomitant]
     Dosage: 7.5 mg, 1x/day
     Dates: start: 201202
  7. PREDNISOLONE [Concomitant]
     Dosage: 7.5 mg, 1x/day
     Dates: start: 20100325
  8. PREDNISOLONE [Concomitant]
     Dosage: 2.5 mg, 1x/day
  9. BISOPROLOL [Concomitant]
     Indication: SUPRAVENTRICULAR EXTRASYSTOLES
     Dosage: 0.5 DF, UNK
     Dates: start: 201004

REACTIONS (2)
  - Osteoarthritis [Recovered/Resolved with Sequelae]
  - Osteonecrosis [Recovered/Resolved with Sequelae]
